FAERS Safety Report 9882285 (Version 2)
Quarter: 2014Q1

REPORT INFORMATION
  Report Type: Spontaneous
  Country: IQ (occurrence: IQ)
  Receive Date: 20140207
  Receipt Date: 20140307
  Transmission Date: 20141002
  Serious: Yes (Life-Threatening, Hospitalization)
  Sender: FDA-Public Use
  Company Number: IQ-ASTRAZENECA-2014SE08842

PATIENT
  Age: 52 Year
  Sex: Male
  Weight: 75 kg

DRUGS (1)
  1. ATACAND [Suspect]
     Indication: HYPERTENSION
     Route: 048
     Dates: start: 20140120, end: 20140127

REACTIONS (3)
  - Throat irritation [Recovered/Resolved]
  - Local swelling [Recovered/Resolved]
  - Angioedema [Unknown]
